FAERS Safety Report 4800249-X (Version None)
Quarter: 2005Q4

REPORT INFORMATION
  Report Type: 
  Country: None (occurrence: None)
  Receive Date: 20051017
  Receipt Date: 20050131
  Transmission Date: 20060501
  Serious: No
  Sender: FDA-Public Use
  Company Number: US-GLAXOSMITHKLINE-A0543077A

PATIENT
  Age: 7 Year
  Sex: Male

DRUGS (2)
  1. CEFTIN [Suspect]
     Dosage: .5TSP TWICE PER DAY
     Route: 048
     Dates: start: 20050126, end: 20050127
  2. TYLENOL (CAPLET) [Concomitant]

REACTIONS (3)
  - DYSGEUSIA [None]
  - PHARMACEUTICAL PRODUCT COMPLAINT [None]
  - VOMITING [None]
